FAERS Safety Report 11276648 (Version 1)
Quarter: 2015Q3

REPORT INFORMATION
  Report Type: Spontaneous
  Country: US (occurrence: None)
  Receive Date: 20150715
  Receipt Date: 20150715
  Transmission Date: 20151125
  Serious: No
  Sender: FDA-Public Use
  Company Number: None

PATIENT
  Age: 63 Year
  Sex: Female
  Weight: 72.58 kg

DRUGS (1)
  1. VALSARTAN. [Suspect]
     Active Substance: VALSARTAN
     Indication: HYPERTENSION
     Route: 048
     Dates: start: 20150701, end: 20150707

REACTIONS (6)
  - Back pain [None]
  - Product substitution issue [None]
  - Dizziness [None]
  - Product quality issue [None]
  - Product label issue [None]
  - Palpitations [None]

NARRATIVE: CASE EVENT DATE: 20150708
